FAERS Safety Report 13162811 (Version 1)
Quarter: 2017Q1

REPORT INFORMATION
  Report Type: Report from Study
  Country: BR (occurrence: BR)
  Receive Date: 20170130
  Receipt Date: 20170130
  Transmission Date: 20170428
  Serious: Yes (Other)
  Sender: FDA-Public Use
  Company Number: PHHY2017BR012330

PATIENT
  Sex: Female
  Weight: 74 kg

DRUGS (1)
  1. ACLASTA [Suspect]
     Active Substance: ZOLEDRONIC ACID
     Indication: OSTEOPOROSIS
     Dosage: 5 MG, Q12MO (ONCE A YEAR)
     Route: 058
     Dates: start: 20150716, end: 20150716

REACTIONS (4)
  - Renal atrophy [Recovering/Resolving]
  - Malaise [Unknown]
  - Body height below normal [Unknown]
  - Incorrect route of drug administration [Unknown]
